FAERS Safety Report 4938293-4 (Version None)
Quarter: 2006Q1

REPORT INFORMATION
  Report Type: 
  Country: None (occurrence: None)
  Receive Date: 20060308
  Receipt Date: 20060308
  Transmission Date: 20060701
  Serious: Yes (Death)
  Sender: FDA-Public Use
  Company Number: None

PATIENT
  Age: 36 Year
  Sex: Female
  Weight: 58.9676 kg

DRUGS (1)
  1. EFFEXOR XR [Suspect]
     Indication: BIPOLAR DISORDER
     Dosage: 75MGS ONCE A DAY PO
     Route: 048
     Dates: start: 20041112, end: 20041121

REACTIONS (3)
  - COMPLETED SUICIDE [None]
  - HYPOTHERMIA [None]
  - MANIA [None]
